FAERS Safety Report 7364612-8 (Version None)
Quarter: 2011Q1

REPORT INFORMATION
  Report Type: 
  Country: None (occurrence: None)
  Receive Date: 20110321
  Receipt Date: 20110311
  Transmission Date: 20110831
  Serious: Yes (Hospitalization)
  Sender: FDA-Public Use
  Company Number: DE-GILEAD-E2B_00001113

PATIENT
  Sex: Female

DRUGS (3)
  1. BOSENTAN [Concomitant]
     Indication: PULMONARY ARTERIAL HYPERTENSION
     Route: 048
     Dates: start: 20100401, end: 20101029
  2. AMBRISENTAN [Suspect]
     Indication: PULMONARY ARTERIAL HYPERTENSION
     Route: 048
     Dates: start: 20101029, end: 20110106
  3. PHENPROCOUMON [Concomitant]
     Route: 048

REACTIONS (5)
  - PALPITATIONS [None]
  - DYSPNOEA EXERTIONAL [None]
  - TACHYCARDIA [None]
  - RESTLESSNESS [None]
  - DYSSOMNIA [None]
